FAERS Safety Report 11981077 (Version 2)
Quarter: 2016Q1

REPORT INFORMATION
  Report Type: Spontaneous
  Country: JP (occurrence: JP)
  Receive Date: 20160129
  Receipt Date: 20160308
  Transmission Date: 20160526
  Serious: Yes (Disabling, Other)
  Sender: FDA-Public Use
  Company Number: JP-PFIZER INC-2015459952

PATIENT
  Age: 44 Year
  Sex: Male
  Weight: 59 kg

DRUGS (1)
  1. BENEFIX [Suspect]
     Active Substance: COAGULATION FACTOR IX RECOMBINANT HUMAN\ISOPROPYL ALCOHOL
     Indication: FACTOR IX DEFICIENCY
     Dosage: 1000 IU, (17 IU/KG) DAILY
     Route: 042
     Dates: start: 201311

REACTIONS (2)
  - Condition aggravated [Not Recovered/Not Resolved]
  - Haemophilic arthropathy [Not Recovered/Not Resolved]

NARRATIVE: CASE EVENT DATE: 20150930
